FAERS Safety Report 23787842 (Version 2)
Quarter: 2024Q2

REPORT INFORMATION
  Report Type: Spontaneous
  Country: GB (occurrence: GB)
  Receive Date: 20240426
  Receipt Date: 20240507
  Transmission Date: 20240716
  Serious: Yes (Other)
  Sender: FDA-Public Use
  Company Number: GB-HIKMA PHARMACEUTICALS-GB-H14001-24-03454

PATIENT

DRUGS (3)
  1. DOCETAXEL [Suspect]
     Active Substance: DOCETAXEL\DOCETAXEL ANHYDROUS
     Indication: Breast cancer
     Dosage: 75 MILLIGRAM
     Route: 065
     Dates: start: 20240103
  2. INSULIN HUMAN [Concomitant]
     Active Substance: INSULIN HUMAN
     Indication: Type 1 diabetes mellitus
     Dosage: UNKNOWN
     Route: 065
     Dates: start: 19790401
  3. TAMOXIFEN [Concomitant]
     Active Substance: TAMOXIFEN
     Indication: Breast cancer
     Dosage: UNKNOWN
     Route: 065
     Dates: start: 20230801, end: 20231101

REACTIONS (9)
  - Depression [Recovering/Resolving]
  - Cognitive disorder [Recovering/Resolving]
  - Depression suicidal [Unknown]
  - Condition aggravated [Unknown]
  - Mental disorder [Unknown]
  - Suicidal ideation [Unknown]
  - Memory impairment [Unknown]
  - Gait disturbance [Unknown]
  - Mental impairment [Unknown]

NARRATIVE: CASE EVENT DATE: 20240108
